FAERS Safety Report 5024561-7 (Version None)
Quarter: 2006Q2

REPORT INFORMATION
  Report Type: 
  Country: None (occurrence: None)
  Receive Date: 20060608
  Receipt Date: 20060608
  Transmission Date: 20061013
  Serious: Yes (Life-Threatening, Hospitalization)
  Sender: FDA-Public Use
  Company Number: None

PATIENT
  Age: 44 Year
  Sex: Male
  Weight: 65 kg

DRUGS (17)
  1. ABELCET [Suspect]
     Indication: HISTOPLASMOSIS
     Dosage: 300 MG Q24H IV
     Route: 042
     Dates: start: 20060118, end: 20060128
  2. ALBUTEROL [Concomitant]
  3. IPRATROPIUM BROMIDE [Concomitant]
  4. CHLORDIAZEPOXIDE [Concomitant]
  5. NEUPOGEN [Concomitant]
  6. METRONIDAZOLE [Concomitant]
  7. ATOVAQUONE [Concomitant]
  8. LEUCOVORIN [Concomitant]
  9. PYRIMETHAMINE TAB [Concomitant]
  10. OMEPRAZOLE [Concomitant]
  11. HEPARIN [Concomitant]
  12. DEXAMETHASONE TAB [Concomitant]
  13. AZITHROMYCIN [Concomitant]
  14. CALCIUM CARBONATE [Concomitant]
  15. M.V.I. [Concomitant]
  16. LORAZEPAM [Concomitant]
  17. THIAMINE [Concomitant]

REACTIONS (2)
  - BLOOD CREATININE INCREASED [None]
  - RENAL IMPAIRMENT [None]
